FAERS Safety Report 18073766 (Version 1)
Quarter: 2020Q3

REPORT INFORMATION
  Report Type: Spontaneous
  Country: DK (occurrence: DK)
  Receive Date: 20200727
  Receipt Date: 20200727
  Transmission Date: 20201103
  Serious: Yes (Hospitalization)
  Sender: FDA-Public Use
  Company Number: DK-AVERITAS PHARMA, INC.-2020-104918

PATIENT
  Age: 52 Year
  Sex: Female

DRUGS (1)
  1. QUTENZA [Suspect]
     Active Substance: CAPSAICIN
     Indication: SMALL FIBRE NEUROPATHY
     Dosage: 179 MILLIGRAM
     Route: 003
     Dates: start: 20200625, end: 20200625

REACTIONS (2)
  - Erythema [Unknown]
  - Pain [Recovering/Resolving]

NARRATIVE: CASE EVENT DATE: 20200625
